FAERS Safety Report 6448584-6 (Version None)
Quarter: 2009Q4

REPORT INFORMATION
  Report Type: 
  Country: None (occurrence: None)
  Receive Date: 20091120
  Receipt Date: 20091116
  Transmission Date: 20100525
  Serious: Yes (Hospitalization)
  Sender: FDA-Public Use
  Company Number: FR-BAYER-200939535GPV

PATIENT
  Age: 55 Year
  Sex: Male

DRUGS (3)
  1. CIFLOX [Suspect]
     Indication: URINARY TRACT INFECTION
     Route: 048
     Dates: start: 20090801, end: 20090101
  2. TAVANIC [Suspect]
     Indication: URINARY TRACT INFECTION
     Route: 048
     Dates: start: 20090815, end: 20090801
  3. NOROXIN [Suspect]
     Indication: URINARY TRACT INFECTION
     Route: 048
     Dates: start: 20090801, end: 20090801

REACTIONS (5)
  - DERMATITIS BULLOUS [None]
  - ERYTHEMA [None]
  - PHOTOSENSITIVITY REACTION [None]
  - RASH MACULO-PAPULAR [None]
  - SKIN LESION [None]
